FAERS Safety Report 7201209-4 (Version None)
Quarter: 2010Q4

REPORT INFORMATION
  Report Type: 
  Country: None (occurrence: None)
  Receive Date: 20101227
  Receipt Date: 20101227
  Transmission Date: 20110411
  Serious: Yes (Life-Threatening, Other)
  Sender: FDA-Public Use
  Company Number: None

PATIENT
  Sex: Female
  Weight: 86.1834 kg

DRUGS (1)
  1. LUNESTA [Suspect]
     Indication: INSOMNIA
     Dosage: ONE TABLET AT BEDTIME PO
     Route: 048
     Dates: start: 20101219, end: 20101222

REACTIONS (8)
  - CRYING [None]
  - DEPRESSION [None]
  - DISORIENTATION [None]
  - DRUG EFFECT DECREASED [None]
  - DRUG INTERACTION [None]
  - DYSGEUSIA [None]
  - MIDDLE INSOMNIA [None]
  - SUICIDAL IDEATION [None]
